FAERS Safety Report 9356461 (Version 1)
Quarter: 2013Q2

REPORT INFORMATION
  Report Type: Spontaneous
  Country: US (occurrence: US)
  Receive Date: 20130619
  Receipt Date: 20130619
  Transmission Date: 20140414
  Serious: Yes (Other)
  Sender: FDA-Public Use
  Company Number: US-RB-003795-08

PATIENT
  Age: 43 Year
  Sex: Female

DRUGS (5)
  1. SUBOXONE [Suspect]
     Indication: DRUG DEPENDENCE
     Route: 060
     Dates: start: 20080829, end: 2008
  2. SUBOXONE [Suspect]
     Dosage: DOSING DETAILS UNKNOWN; CUTTING THE DOSE IN HALF
     Route: 048
     Dates: end: 2008
  3. PLAQUENIL [Concomitant]
     Indication: SYSTEMIC LUPUS ERYTHEMATOSUS
     Dosage: DOSING INFORMATION UNKNOWN.
     Route: 065
  4. HORMONE REPLACEMENT THERAPY [Concomitant]
     Indication: PRODUCT USED FOR UNKNOWN INDICATION
     Dosage: DOSING INFORMATION UNKNOWN.
     Route: 065
  5. ELAVIL [Concomitant]
     Indication: PRODUCT USED FOR UNKNOWN INDICATION
     Route: 065

REACTIONS (5)
  - Dizziness [Recovered/Resolved]
  - Nausea [Recovered/Resolved]
  - Underdose [Recovered/Resolved]
  - Intentional drug misuse [Recovered/Resolved]
  - Breast cancer [Unknown]
